FAERS Safety Report 8784412 (Version 2)
Quarter: 2012Q4

REPORT INFORMATION
  Report Type: 
  Country: US (occurrence: US)
  Receive Date: 20120913
  Receipt Date: 20121107
  Transmission Date: 20130627
  Serious: No
  Sender: FDA-Public Use
  Company Number: US-PFIZER INC-2012220406

PATIENT
  Sex: Female

DRUGS (2)
  1. LYBREL [Suspect]
     Indication: ENDOMETRIOSIS
     Dosage: UNK
  2. LYBREL [Suspect]
     Indication: CONTRACEPTION

REACTIONS (3)
  - Depressed mood [Unknown]
  - Irritability [Unknown]
  - Drug administration error [Unknown]
